FAERS Safety Report 7066867-6 (Version None)
Quarter: 2010Q4

REPORT INFORMATION
  Report Type: 
  Country: None (occurrence: None)
  Receive Date: 20101027
  Receipt Date: 20101004
  Transmission Date: 20110411
  Serious: No
  Sender: FDA-Public Use
  Company Number: US-WYE-H17994310

PATIENT
  Sex: Female
  Weight: 61.29 kg

DRUGS (3)
  1. PREMPRO [Suspect]
     Indication: HORMONE REPLACEMENT THERAPY
     Dosage: 0.45MG/1.5MG DAILY
     Route: 048
  2. TETRACYCLINE [Suspect]
     Indication: ACNE
     Route: 048
  3. ZOLOFT [Suspect]
     Indication: ANXIETY
     Route: 048

REACTIONS (2)
  - ALOPECIA [None]
  - ANXIETY [None]
